FAERS Safety Report 9802123 (Version 1)
Quarter: 2014Q1

REPORT INFORMATION
  Report Type: Spontaneous
  Country: CH (occurrence: CH)
  Receive Date: 20140107
  Receipt Date: 20140107
  Transmission Date: 20141002
  Serious: Yes (Other)
  Sender: FDA-Public Use
  Company Number: CH-ASTRAZENECA-2013SE94397

PATIENT
  Age: 0 Day
  Sex: Male

DRUGS (2)
  1. SEROQUEL [Suspect]
     Route: 064
  2. SEROQUEL [Suspect]
     Route: 064

REACTIONS (1)
  - Large for dates baby [Unknown]
